FAERS Safety Report 25036546 (Version 1)
Quarter: 2025Q1

REPORT INFORMATION
  Report Type: Spontaneous
  Country: SY (occurrence: SY)
  Receive Date: 20250304
  Receipt Date: 20250304
  Transmission Date: 20250409
  Serious: Yes (Other)
  Sender: GLAND PHARMA LTD
  Company Number: SY-GLANDPHARMA-SY-2025GLNLIT00465

PATIENT
  Age: 36 Year
  Sex: Male

DRUGS (1)
  1. FLUOROURACIL [Suspect]
     Active Substance: FLUOROURACIL
     Indication: Basal cell naevus syndrome
     Route: 026

REACTIONS (5)
  - Necrosis [Unknown]
  - Discomfort [Unknown]
  - Erythema [Unknown]
  - Ulcer [Unknown]
  - Product use in unapproved indication [Unknown]
